FAERS Safety Report 9735264 (Version 1)
Quarter: 2013Q4

REPORT INFORMATION
  Report Type: Spontaneous
  Country: NL (occurrence: NL)
  Receive Date: 20131206
  Receipt Date: 20131206
  Transmission Date: 20140711
  Serious: Yes (Hospitalization)
  Sender: FDA-Public Use
  Company Number: NL-PFIZER INC-2013345173

PATIENT
  Age: 55 Year
  Sex: Male
  Weight: 80 kg

DRUGS (4)
  1. DOXYCYCLINE HYCLATE [Suspect]
     Indication: RESPIRATORY TRACT INFECTION
     Dosage: 100 MG, 2X/DAY
     Dates: start: 20131104, end: 20131104
  2. DOXYCYCLINE HYCLATE [Interacting]
     Dosage: 100 MG, 1X/DAY
     Dates: start: 20131105, end: 20131106
  3. METHOTREXAT [Interacting]
     Dosage: 15 MG, WEEKLY
     Dates: start: 20100209
  4. ACETYLSALICYLIC ACID [Concomitant]
     Dosage: 80 MG, 1X/DAY
     Dates: start: 20101028

REACTIONS (2)
  - Convulsion [Recovering/Resolving]
  - Drug interaction [Recovering/Resolving]
